FAERS Safety Report 8920865 (Version 2)
Quarter: 2013Q2

REPORT INFORMATION
  Report Type: Report from Study
  Country: JP (occurrence: JP)
  Receive Date: 20121123
  Receipt Date: 20130612
  Transmission Date: 20140414
  Serious: Yes (Hospitalization)
  Sender: FDA-Public Use
  Company Number: JP-009507513-2012SP018298

PATIENT
  Age: 69 Year
  Sex: Female
  Weight: 55 kg

DRUGS (14)
  1. PEGINTRON [Suspect]
     Indication: CHRONIC HEPATITIS C
     Dosage: 1.5 MICROGRAM PER KILOGRAM, QW
     Route: 058
     Dates: start: 20120124, end: 20120313
  2. REBETOL [Suspect]
     Indication: CHRONIC HEPATITIS C
     Dosage: 600 MG, QD
     Route: 048
     Dates: start: 20120124, end: 20120202
  3. REBETOL [Suspect]
     Dosage: 400 MG, QD
     Route: 048
     Dates: start: 20120203, end: 20120214
  4. REBETOL [Suspect]
     Dosage: 200 MG, QD
     Route: 048
     Dates: start: 20120215, end: 20120319
  5. TELAVIC [Suspect]
     Indication: CHRONIC HEPATITIS C
     Dosage: 1500 MG DAILY
     Route: 048
     Dates: start: 20120124, end: 20120319
  6. VASOLAN [Concomitant]
     Indication: ATRIAL FIBRILLATION
     Dosage: 120 MG, QD
     Route: 048
     Dates: end: 20120319
  7. VASOLAN [Concomitant]
     Dosage: 60 MG, QD
     Route: 048
     Dates: start: 20120320, end: 20120321
  8. MYSLEE [Concomitant]
     Indication: INSOMNIA
     Dosage: 2.5 MG, QD
     Route: 048
  9. MERCAZOLE [Concomitant]
     Indication: HYPERTHYROIDISM
     Dosage: 1.25 MG, QD
     Route: 048
  10. LANIRAPID [Concomitant]
     Indication: ATRIAL FIBRILLATION
     Dosage: 0.1 MG, QD, FORMULATION: POR
     Route: 048
     Dates: end: 20120131
  11. LANIRAPID [Concomitant]
     Indication: ATRIAL FIBRILLATION
     Dosage: UPDATE (02JUL2012)
     Route: 048
     Dates: start: 20120201, end: 20120319
  12. WARFARIN POTASSIUM [Concomitant]
     Indication: ATRIAL FIBRILLATION
     Dosage: 2.5 MG, QD. FORMULATION: POR
     Route: 048
     Dates: end: 20120206
  13. LOXOPROFEN [Concomitant]
     Indication: PROPHYLAXIS
     Dosage: 60 MG, PRN,FORMULATION: POR
     Route: 048
     Dates: start: 20120123, end: 20120220
  14. MUCOSTA [Concomitant]
     Indication: PROPHYLAXIS
     Dosage: 100 MG, PRN,FORMULATION: POR
     Route: 048
     Dates: start: 20120123, end: 20120220

REACTIONS (2)
  - Cardiac failure [Recovered/Resolved]
  - Haemoglobin decreased [Not Recovered/Not Resolved]
